FAERS Safety Report 8445594-4 (Version None)
Quarter: 2012Q2

REPORT INFORMATION
  Report Type: 
  Country: None (occurrence: None)
  Receive Date: 20120618
  Receipt Date: 20120611
  Transmission Date: 20120825
  Serious: Yes (Other)
  Sender: FDA-Public Use
  Company Number: PHHY2012JP051386

PATIENT

DRUGS (2)
  1. CELECOXIB [Suspect]
     Route: 048
  2. DICLOFENAC SODIUM [Suspect]

REACTIONS (1)
  - MENINGITIS ASEPTIC [None]
